FAERS Safety Report 10197241 (Version 1)
Quarter: 2014Q2

REPORT INFORMATION
  Report Type: Spontaneous
  Country: US (occurrence: US)
  Receive Date: 20140527
  Receipt Date: 20140527
  Transmission Date: 20141212
  Serious: Yes (Other)
  Sender: FDA-Public Use
  Company Number: US-GLAXOSMITHKLINE-A1074590A

PATIENT
  Age: 29 Year
  Sex: Male

DRUGS (1)
  1. PROMACTA [Suspect]
     Indication: WISKOTT-ALDRICH SYNDROME
     Dosage: 75MG PER DAY
     Route: 048
     Dates: start: 20131122

REACTIONS (1)
  - Bone marrow transplant [Unknown]
